FAERS Safety Report 8595555-X (Version None)
Quarter: 2012Q3

REPORT INFORMATION
  Report Type: 
  Country: None (occurrence: None)
  Receive Date: 20120815
  Receipt Date: 20120807
  Transmission Date: 20120928
  Serious: Yes (Hospitalization)
  Sender: FDA-Public Use
  Company Number: US-US-EMD SERONO, INC.-7044302

PATIENT
  Sex: Female
  Weight: 104 kg

DRUGS (8)
  1. FLUTICASONE PROPIONATE [Concomitant]
     Indication: ASTHMA
     Dates: start: 20100101
  2. ALEVE [Concomitant]
     Indication: PREMEDICATION
  3. REBIF [Suspect]
     Indication: MULTIPLE SCLEROSIS
     Route: 058
     Dates: start: 20100509
  4. ALBUTEROL [Concomitant]
     Indication: ASTHMA
  5. ASPIRIN [Concomitant]
     Indication: PROPHYLAXIS
  6. CRESTOR [Concomitant]
     Indication: LIPIDS INCREASED
  7. BETHANECHOL [Concomitant]
     Indication: BLADDER DISORDER
  8. LEVOTHYROXINE SODIUM [Concomitant]
     Indication: HYPOTHYROIDISM

REACTIONS (5)
  - PRODUCTIVE COUGH [None]
  - MULTIPLE SCLEROSIS RELAPSE [None]
  - INJECTION SITE ERYTHEMA [None]
  - PYREXIA [None]
  - PAIN [None]
